FAERS Safety Report 10262056 (Version 3)
Quarter: 2015Q1

REPORT INFORMATION
  Report Type: Report from Study
  Country: JP (occurrence: JP)
  Receive Date: 20140626
  Receipt Date: 20150327
  Transmission Date: 20150720
  Serious: Yes (Life-Threatening, Hospitalization)
  Sender: FDA-Public Use
  Company Number: JP-SA-2014SA084484

PATIENT
  Age: 71 Year
  Sex: Male
  Weight: 68 kg

DRUGS (11)
  1. THYMOGLOBULINE [Suspect]
     Active Substance: LAPINE T-LYMPHOCYTE IMMUNE GLOBULIN
     Indication: APLASTIC ANAEMIA
     Route: 042
     Dates: start: 20130508, end: 20130512
  2. SOLU-MEDROL [Concomitant]
     Active Substance: METHYLPREDNISOLONE SODIUM SUCCINATE
     Indication: PROPHYLAXIS
     Dates: start: 20130508, end: 20130518
  3. CINAL [Concomitant]
     Active Substance: ASCORBIC ACID\CALCIUM PANTOTHENATE
     Indication: SINUSITIS
     Dates: start: 20130125, end: 20130618
  4. THYMOGLOBULINE [Suspect]
     Active Substance: LAPINE T-LYMPHOCYTE IMMUNE GLOBULIN
     Indication: APLASTIC ANAEMIA
     Route: 042
     Dates: start: 20130508, end: 20130512
  5. POLARAMINE [Concomitant]
     Active Substance: DEXCHLORPHENIRAMINE MALEATE
     Indication: PROPHYLAXIS
     Dates: start: 20130508, end: 20130508
  6. MUCODYNE [Concomitant]
     Active Substance: CARBOCYSTEINE
     Indication: SINUSITIS
     Dates: start: 20130125, end: 20130618
  7. CLARITH [Concomitant]
     Active Substance: CLARITHROMYCIN
     Indication: SINUSITIS
     Dates: start: 20130125, end: 20130618
  8. PREDONINE [Concomitant]
     Active Substance: PREDNISOLONE\PREDNISOLONE ACETATE\PREDNISOLONE SODIUM SUCCINATE
     Indication: PROPHYLAXIS
     Dates: start: 20130519, end: 20130822
  9. SINGULAIR [Concomitant]
     Active Substance: MONTELUKAST SODIUM
     Indication: SINUSITIS
     Dates: start: 20130125, end: 20130706
  10. NEORAL [Suspect]
     Active Substance: CYCLOSPORINE
     Indication: APLASTIC ANAEMIA
     Route: 065
     Dates: start: 20130522, end: 20130621
  11. STRONG NEO-MINOPHAGEN C [Concomitant]
     Active Substance: AMMONIUM GLYCYRRHIZATE\CYSTEINE HYDROCHLORIDE\GLYCINE
     Indication: PROPHYLAXIS
     Dates: start: 20130508, end: 20130508

REACTIONS (7)
  - Gingival abscess [Recovered/Resolved]
  - Cholestasis [Recovered/Resolved]
  - Constipation [Not Recovered/Not Resolved]
  - Systemic mycosis [Recovered/Resolved]
  - White blood cell count decreased [Recovered/Resolved]
  - Iron overload [Recovering/Resolving]
  - Febrile neutropenia [Recovered/Resolved]

NARRATIVE: CASE EVENT DATE: 20130511
